FAERS Safety Report 7768995-6 (Version None)
Quarter: 2011Q3

REPORT INFORMATION
  Report Type: 
  Country: None (occurrence: None)
  Receive Date: 20110922
  Receipt Date: 20101105
  Transmission Date: 20111222
  Serious: No
  Sender: FDA-Public Use
  Company Number: US-ASTRAZENECA-2010SE38544

PATIENT
  Age: 46 Year
  Sex: Male

DRUGS (2)
  1. SEROQUEL [Suspect]
     Dosage: 100MG TWICE A DAY AS NEEDED AND 400MG AT BEDTIME
     Route: 048
  2. SEROQUEL [Suspect]
     Indication: BIPOLAR DISORDER
     Route: 048
     Dates: start: 20050101

REACTIONS (6)
  - WEIGHT INCREASED [None]
  - INSOMNIA [None]
  - APATHY [None]
  - HUNGER [None]
  - INCREASED APPETITE [None]
  - AGITATION [None]
